FAERS Safety Report 5413510-5 (Version None)
Quarter: 2007Q3

REPORT INFORMATION
  Report Type: 
  Country: None (occurrence: None)
  Receive Date: 20070814
  Receipt Date: 20070807
  Transmission Date: 20080115
  Serious: Yes (Other)
  Sender: FDA-Public Use
  Company Number: US-AMGEN-US237933

PATIENT
  Sex: Female
  Weight: 70.4 kg

DRUGS (10)
  1. ENBREL [Suspect]
     Indication: RHEUMATOID ARTHRITIS
     Route: 065
     Dates: start: 20070605
  2. PRENATAL VITAMINS [Concomitant]
     Route: 048
     Dates: start: 20070605
  3. FISH OIL [Concomitant]
     Route: 048
     Dates: start: 20070605
  4. CALCIUM CHLORIDE [Concomitant]
     Route: 048
     Dates: start: 20070605
  5. YASMIN [Concomitant]
     Route: 048
     Dates: start: 20070606, end: 20070706
  6. PREDNISONE TAB [Concomitant]
     Route: 048
     Dates: start: 20070605
  7. SYNTHROID [Concomitant]
     Route: 048
     Dates: start: 20070605
  8. METFORMIN HCL [Concomitant]
     Route: 048
     Dates: start: 20070605
  9. TYLENOL (CAPLET) [Concomitant]
     Route: 048
     Dates: start: 20070717, end: 20070717
  10. HERBAL SUPPLEMENT [Concomitant]

REACTIONS (1)
  - ABORTION SPONTANEOUS [None]
